FAERS Safety Report 7315419-9 (Version None)
Quarter: 2011Q1

REPORT INFORMATION
  Report Type: 
  Country: None (occurrence: None)
  Receive Date: 20110225
  Receipt Date: 20110220
  Transmission Date: 20110831
  Serious: Yes (Other)
  Sender: FDA-Public Use
  Company Number: A0915303A

PATIENT
  Sex: Female

DRUGS (2)
  1. LAMICTAL [Suspect]
     Dosage: 150MGD PER DAY
     Route: 048
  2. DEPAKOTE [Suspect]
     Route: 065

REACTIONS (3)
  - LYMPHADENOPATHY [None]
  - INAPPROPRIATE SCHEDULE OF DRUG ADMINISTRATION [None]
  - ANAPHYLACTIC REACTION [None]
